FAERS Safety Report 13858704 (Version 2)
Quarter: 2018Q4

REPORT INFORMATION
  Report Type: Report from Study
  Country: JP (occurrence: JP)
  Receive Date: 20170811
  Receipt Date: 20181009
  Transmission Date: 20190204
  Serious: Yes (Life-Threatening, Hospitalization, Other)
  Sender: FDA-Public Use
  Company Number: JP-ROCHE-1971429

PATIENT
  Age: 60 Year
  Sex: Female
  Weight: 68 kg

DRUGS (15)
  1. TRASTUZUMAB. [Suspect]
     Active Substance: TRASTUZUMAB
     Dosage: 480 MG/BODY
     Route: 041
     Dates: start: 20160408, end: 20160408
  2. TRASTUZUMAB. [Suspect]
     Active Substance: TRASTUZUMAB
     Indication: BREAST CANCER
     Route: 041
  3. TRASTUZUMAB. [Suspect]
     Active Substance: TRASTUZUMAB
     Dosage: 480MG/BODY
     Route: 041
     Dates: start: 20160226, end: 20160226
  4. DOCETAXEL. [Suspect]
     Active Substance: DOCETAXEL
     Dosage: 132MG/BODY
     Route: 041
     Dates: start: 20160226, end: 20160226
  5. PEGFILGRASTIM [Suspect]
     Active Substance: PEGFILGRASTIM
     Route: 058
     Dates: start: 20160319, end: 20160319
  6. PEGFILGRASTIM [Suspect]
     Active Substance: PEGFILGRASTIM
     Route: 058
     Dates: start: 20160411, end: 20160411
  7. PEGFILGRASTIM [Suspect]
     Active Substance: PEGFILGRASTIM
     Indication: COLONY STIMULATING FACTOR THERAPY
     Route: 058
     Dates: start: 20160229, end: 20160229
  8. TRASTUZUMAB. [Suspect]
     Active Substance: TRASTUZUMAB
     Dosage: 480 MG/BODY
     Route: 041
     Dates: start: 20160318, end: 20160318
  9. DOCETAXEL. [Suspect]
     Active Substance: DOCETAXEL
     Dosage: 132 MG/BODY
     Route: 041
     Dates: start: 20160318, end: 20160318
  10. DOCETAXEL. [Suspect]
     Active Substance: DOCETAXEL
     Dosage: 132 MG/BODY
     Route: 041
     Dates: start: 20160408, end: 20160408
  11. PERTUZUMAB. [Suspect]
     Active Substance: PERTUZUMAB
     Indication: BREAST CANCER
     Route: 041
  12. PERTUZUMAB. [Suspect]
     Active Substance: PERTUZUMAB
     Dosage: 420MG/BODY
     Route: 041
     Dates: start: 20160226, end: 20160226
  13. PERTUZUMAB. [Suspect]
     Active Substance: PERTUZUMAB
     Dosage: 420 MG/BODY
     Route: 041
     Dates: start: 20160318, end: 20160318
  14. DOCETAXEL. [Suspect]
     Active Substance: DOCETAXEL
     Indication: BREAST CANCER
     Route: 041
  15. PERTUZUMAB. [Suspect]
     Active Substance: PERTUZUMAB
     Dosage: 420 MG/BODY
     Route: 041
     Dates: start: 20160408, end: 20160408

REACTIONS (2)
  - Interstitial lung disease [Recovered/Resolved]
  - Febrile neutropenia [Recovered/Resolved]

NARRATIVE: CASE EVENT DATE: 20160304
